FAERS Safety Report 8050965-4 (Version None)
Quarter: 2012Q1

REPORT INFORMATION
  Report Type: 
  Country: None (occurrence: None)
  Receive Date: 20120117
  Receipt Date: 20120110
  Transmission Date: 20120608
  Serious: Yes (Other)
  Sender: FDA-Public Use
  Company Number: PHHY2012VE003257

PATIENT
  Sex: Female

DRUGS (5)
  1. ZOLEDRONOC ACID [Suspect]
     Indication: OSTEOPOROSIS
     Dosage: UNK
     Route: 042
     Dates: start: 20100906
  2. BOBIDAX [Concomitant]
  3. ZOLEDRONOC ACID [Suspect]
     Dosage: UNK
     Route: 042
     Dates: start: 20111022
  4. GLUCOSAMINE [Concomitant]
  5. ASPIRIN [Concomitant]

REACTIONS (3)
  - MUSCLE SPASMS [None]
  - ARTHRALGIA [None]
  - THROMBOSIS [None]
